FAERS Safety Report 25331544 (Version 2)
Quarter: 2025Q2

REPORT INFORMATION
  Report Type: Spontaneous
  Country: PL (occurrence: PL)
  Receive Date: 20250519
  Receipt Date: 20250526
  Transmission Date: 20250716
  Serious: Yes (Death, Hospitalization)
  Sender: BOEHRINGER INGELHEIM
  Company Number: PL-BoehringerIngelheim-2025-BI-027938

PATIENT
  Age: 47 Year
  Sex: Female
  Weight: 100 kg

DRUGS (2)
  1. AFATINIB [Suspect]
     Active Substance: AFATINIB
     Indication: Lung carcinoma cell type unspecified stage IV
     Dates: start: 20201023, end: 20210312
  2. AFATINIB [Suspect]
     Active Substance: AFATINIB
     Indication: Adenocarcinoma

REACTIONS (4)
  - Malignant neoplasm progression [Fatal]
  - Dyspnoea [Unknown]
  - Pericardial effusion [Unknown]
  - COVID-19 [Unknown]

NARRATIVE: CASE EVENT DATE: 20210312
